FAERS Safety Report 7692078-7 (Version None)
Quarter: 2011Q3

REPORT INFORMATION
  Report Type: 
  Country: None (occurrence: None)
  Receive Date: 20110818
  Receipt Date: 20110817
  Transmission Date: 20111222
  Serious: Yes (Death)
  Sender: FDA-Public Use
  Company Number: JP-B.I. PHARMACEUTICALS,INC./RIDGEFIELD-2011-BP-19499NB

PATIENT
  Age: 87 Year
  Sex: Female
  Weight: 50 kg

DRUGS (8)
  1. LASIX [Concomitant]
     Route: 065
  2. PRADAXA [Suspect]
     Indication: ATRIAL FIBRILLATION
     Dosage: 220 MG
     Route: 048
     Dates: start: 20110714, end: 20110723
  3. ALDACTONE [Concomitant]
     Route: 065
  4. URSO 250 [Concomitant]
     Route: 065
  5. OPAPROSMON [Concomitant]
     Route: 065
  6. OMEPRAZOLE [Concomitant]
     Route: 065
  7. NICORANTA [Concomitant]
     Route: 065
  8. DIGOXIN [Concomitant]
     Route: 065

REACTIONS (3)
  - EXSANGUINATION [None]
  - MELAENA [None]
  - INTERNATIONAL NORMALISED RATIO INCREASED [None]
